FAERS Safety Report 6093903-6 (Version None)
Quarter: 2009Q1

REPORT INFORMATION
  Report Type: 
  Country: None (occurrence: None)
  Receive Date: 20090224
  Receipt Date: 20090224
  Transmission Date: 20090719
  Serious: Yes (Hospitalization, Other)
  Sender: FDA-Public Use
  Company Number: None

PATIENT
  Age: 38 Year
  Sex: Male
  Weight: 86.1834 kg

DRUGS (2)
  1. MONTELUKAST SODIUM [Suspect]
     Indication: POST-TRAUMATIC STRESS DISORDER
     Dosage: 10 MG 1 PER NIGHT PO
     Route: 048
     Dates: start: 20030101, end: 20090223
  2. MONTELUKAST SODIUM [Suspect]
     Indication: SUICIDAL IDEATION
     Dosage: 10 MG 1 PER NIGHT PO
     Route: 048
     Dates: start: 20030101, end: 20090223

REACTIONS (1)
  - SUICIDE ATTEMPT [None]
